FAERS Safety Report 12110616 (Version 1)
Quarter: 2016Q1

REPORT INFORMATION
  Report Type: Spontaneous
  Country: US (occurrence: US)
  Receive Date: 20160224
  Receipt Date: 20160224
  Transmission Date: 20160526
  Serious: Yes (Hospitalization)
  Sender: FDA-Public Use
  Company Number: US-ROXANE LABORATORIES, INC.-2016-RO-00331RO

PATIENT
  Age: 35 Year
  Sex: Female

DRUGS (1)
  1. OXYCODONE HYDROCHLORIDE. [Suspect]
     Active Substance: OXYCODONE HYDROCHLORIDE
     Indication: BACK PAIN
     Route: 065

REACTIONS (7)
  - Spinal cord ischaemia [Unknown]
  - Respiratory depression [Unknown]
  - Hypoxia [Unknown]
  - Spinal cord injury [Unknown]
  - Intentional overdose [Unknown]
  - Respiratory acidosis [Unknown]
  - Quadriplegia [Unknown]
